FAERS Safety Report 8667020 (Version 2)
Quarter: 2015Q1

REPORT INFORMATION
  Report Type: Report from Study
  Country: US (occurrence: US)
  Receive Date: 20120716
  Receipt Date: 20150210
  Transmission Date: 20150721
  Serious: Yes (Death)
  Sender: FDA-Public Use
  Company Number: US-ROCHE-1086815

PATIENT
  Sex: Male

DRUGS (10)
  1. LIDOCAINE. [Concomitant]
     Active Substance: LIDOCAINE
     Route: 065
  2. PROZAC [Concomitant]
     Active Substance: FLUOXETINE HYDROCHLORIDE
     Route: 065
  3. AMCOR [Concomitant]
  4. TRAMADOL [Concomitant]
     Active Substance: TRAMADOL
     Route: 065
  5. LUCENTIS [Suspect]
     Active Substance: RANIBIZUMAB
     Indication: DIABETIC RETINOPATHY
     Dosage: 3.5MG/0.5ML
     Route: 050
     Dates: start: 200907
  6. BETADINE [Concomitant]
     Active Substance: POVIDONE-IODINE
  7. GLIPIZIDE. [Concomitant]
     Active Substance: GLIPIZIDE
     Route: 065
  8. CILOXAN [Concomitant]
     Active Substance: CIPROFLOXACIN HYDROCHLORIDE
     Route: 065
  9. PROPARACAINE [Concomitant]
     Active Substance: PROPARACAINE
  10. VIGAMOX [Concomitant]
     Active Substance: MOXIFLOXACIN HYDROCHLORIDE
     Route: 065

REACTIONS (4)
  - Death [Fatal]
  - Eye haemorrhage [Unknown]
  - Visual impairment [Unknown]
  - Vision blurred [Unknown]
